FAERS Safety Report 8207910-8 (Version None)
Quarter: 2012Q1

REPORT INFORMATION
  Report Type: 
  Country: None (occurrence: None)
  Receive Date: 20120314
  Receipt Date: 20120301
  Transmission Date: 20120608
  Serious: Yes (Death, Hospitalization)
  Sender: FDA-Public Use
  Company Number: DE-SANOFI-AVENTIS-200710082DE

PATIENT
  Age: 68 Year
  Sex: Male
  Weight: 101 kg

DRUGS (4)
  1. PREDNISOLONE [Suspect]
     Route: 048
  2. METOPROLOL SUCCINATE [Concomitant]
     Indication: HYPERTENSION
     Route: 048
  3. DOCETAXEL [Suspect]
     Indication: NEOPLASM PROSTATE
     Route: 051
     Dates: start: 20060519, end: 20060616
  4. DOCETAXEL [Suspect]
     Route: 051
     Dates: start: 20060630, end: 20060707

REACTIONS (6)
  - STOMATITIS [None]
  - FEBRILE NEUTROPENIA [None]
  - DIARRHOEA [None]
  - STEVENS-JOHNSON SYNDROME [None]
  - NEUTROPENIA [None]
  - ACUTE HEPATIC FAILURE [None]
